FAERS Safety Report 6843392-6 (Version None)
Quarter: 2010Q3

REPORT INFORMATION
  Report Type: 
  Country: None (occurrence: None)
  Receive Date: 20100715
  Receipt Date: 20100622
  Transmission Date: 20110219
  Serious: Yes (Disabling, Other)
  Sender: FDA-Public Use
  Company Number: CH-BAYER-201029018GPV

PATIENT
  Age: 45 Year
  Sex: Female
  Weight: 58 kg

DRUGS (2)
  1. MIRENA [Suspect]
     Indication: PRODUCT USED FOR UNKNOWN INDICATION
     Route: 015
     Dates: start: 20040701
  2. PLAQUENIL [Concomitant]
     Indication: ARTHRITIS

REACTIONS (4)
  - DEAFNESS [None]
  - EAR DISCOMFORT [None]
  - ENDOLYMPHATIC HYDROPS [None]
  - INNER EAR INFLAMMATION [None]
